FAERS Safety Report 7704810-4 (Version None)
Quarter: 2011Q3

REPORT INFORMATION
  Report Type: 
  Country: None (occurrence: None)
  Receive Date: 20110823
  Receipt Date: 20110812
  Transmission Date: 20111222
  Serious: Yes (Death, Hospitalization)
  Sender: FDA-Public Use
  Company Number: US-CELGENEUS-163-21880-11071404

PATIENT
  Sex: Female
  Weight: 52.664 kg

DRUGS (2)
  1. REVLIMID [Suspect]
     Dosage: 5 MILLIGRAM
     Route: 048
     Dates: start: 20110501, end: 20110708
  2. REVLIMID [Suspect]
     Indication: MYELODYSPLASTIC SYNDROME
     Dosage: 10 MILLIGRAM
     Route: 048
     Dates: start: 20110414

REACTIONS (5)
  - CHEST PAIN [None]
  - DYSPNOEA [None]
  - MYELODYSPLASTIC SYNDROME [None]
  - ASTHENIA [None]
  - FATIGUE [None]
